FAERS Safety Report 24143748 (Version 2)
Quarter: 2025Q3

REPORT INFORMATION
  Report Type: Spontaneous
  Country: US (occurrence: US)
  Receive Date: 20240727
  Receipt Date: 20250818
  Transmission Date: 20251021
  Serious: No
  Sender: MERCK SHARP & DOHME LLC
  Company Number: US-009507513-2407USA002625

PATIENT
  Age: 52 Year
  Sex: Male

DRUGS (2)
  1. CASPOFUNGIN ACETATE [Suspect]
     Active Substance: CASPOFUNGIN ACETATE
     Indication: Candida infection
     Dosage: DOSE DESCRIPTION : 150 MILLIGRAM, QD FOR 6 WEEKS?DAILY DOSE : 150 MILLIGRAM
  2. NOXAFIL [Suspect]
     Active Substance: POSACONAZOLE
     Indication: Candida infection
     Dosage: DOSE DESCRIPTION : 300 MILLIGRAM, QD?DAILY DOSE : 300 MILLIGRAM
     Route: 048

REACTIONS (1)
  - Product use in unapproved indication [Unknown]
